FAERS Safety Report 9013113 (Version 1)
Quarter: 2013Q1

REPORT INFORMATION
  Report Type: Spontaneous
  Country: FR (occurrence: FR)
  Receive Date: 20130114
  Receipt Date: 20130114
  Transmission Date: 20140127
  Serious: Yes (Death, Hospitalization, Other)
  Sender: FDA-Public Use
  Company Number: FR-ASTRAZENECA-2013SE01371

PATIENT
  Age: 24910 Day
  Sex: Male

DRUGS (10)
  1. INEXIUM [Suspect]
     Route: 048
     Dates: start: 20120904, end: 20121031
  2. TEMODAL [Suspect]
     Route: 048
     Dates: start: 20120917, end: 20121025
  3. LEVETIRACETAM [Suspect]
     Route: 048
     Dates: start: 20120917, end: 20121031
  4. MEDROL [Suspect]
     Route: 048
     Dates: start: 20120904, end: 20121031
  5. GLYCEROTONE [Concomitant]
     Dates: start: 20120904
  6. DOLIPRANE [Concomitant]
     Route: 048
     Dates: start: 20120904
  7. RADIOTHERAPY [Concomitant]
     Dosage: 60 GRAYS
     Dates: start: 20121017
  8. FONX [Concomitant]
  9. SMECTA [Concomitant]
     Dosage: AS REQUIRED
  10. MANNITOL 20% AND NACL 0.9% [Concomitant]

REACTIONS (3)
  - Mixed liver injury [Fatal]
  - Disease progression [Not Recovered/Not Resolved]
  - Asthenia [Unknown]
